FAERS Safety Report 4962197-4 (Version None)
Quarter: 2006Q1

REPORT INFORMATION
  Report Type: 
  Country: None (occurrence: None)
  Receive Date: 20060329
  Receipt Date: 20060315
  Transmission Date: 20060701
  Serious: Yes (Other)
  Sender: FDA-Public Use
  Company Number: B0416861A

PATIENT
  Age: 45 Year
  Sex: Male

DRUGS (13)
  1. LITHIUM SALT (FORMULATION UNKNOWN) (LITHIUM SALT) [Suspect]
  2. WELLBUTRIN [Suspect]
  3. SERTRALINE [Suspect]
  4. LINEZOLID [Suspect]
     Indication: ENTEROCOCCAL INFECTION
  5. TRAZODONE HCL [Suspect]
  6. METRONIDAZOLE [Concomitant]
  7. BACLOFEN [Concomitant]
  8. PROMETHAZINE [Concomitant]
  9. DOCUSATE SODIUM [Concomitant]
  10. BISACODYL [Concomitant]
  11. MEGESTROL ACETATE [Concomitant]
  12. RISPERIDONE [Concomitant]
  13. LANSOPRAZOLE [Concomitant]

REACTIONS (3)
  - ANTIPSYCHOTIC DRUG LEVEL ABOVE THERAPEUTIC [None]
  - DRUG INTERACTION [None]
  - SEROTONIN SYNDROME [None]
